FAERS Safety Report 4754322-5 (Version None)
Quarter: 2005Q3

REPORT INFORMATION
  Report Type: 
  Country: None (occurrence: None)
  Receive Date: 20050825
  Receipt Date: 20050816
  Transmission Date: 20060218
  Serious: Yes (Life-Threatening, Hospitalization, Other)
  Sender: FDA-Public Use
  Company Number: 2005094839

PATIENT
  Age: 49 Year
  Sex: Female
  Weight: 58.514 kg

DRUGS (2)
  1. SPIRONOLACTONE [Suspect]
     Indication: HIRSUTISM
     Dosage: 100 MG (50 MG, BID), ORAL
     Route: 048
     Dates: start: 19971229, end: 20050101
  2. VANIQA (EFLORNITHINE HYDROCHLORIDE) [Concomitant]

REACTIONS (1)
  - THYROID GLAND CANCER [None]
